FAERS Safety Report 6243018-9 (Version None)
Quarter: 2009Q2

REPORT INFORMATION
  Report Type: 
  Country: None (occurrence: None)
  Receive Date: 20090624
  Receipt Date: 20090615
  Transmission Date: 20091009
  Serious: Yes (Death, Other)
  Sender: FDA-Public Use
  Company Number: US-PFIZER INC-2009228228

PATIENT
  Sex: Female

DRUGS (2)
  1. SUNITINIB MALATE [Suspect]
     Indication: RENAL CELL CARCINOMA
  2. WARFARIN SODIUM [Suspect]

REACTIONS (2)
  - CEREBRAL HAEMORRHAGE [None]
  - DEATH [None]
